FAERS Safety Report 5035034-X (Version None)
Quarter: 2006Q2

REPORT INFORMATION
  Report Type: 
  Country: None (occurrence: None)
  Receive Date: 20060627
  Receipt Date: 20060602
  Transmission Date: 20061013
  Serious: Yes (Death)
  Sender: FDA-Public Use
  Company Number: 2006AP02512

PATIENT
  Age: 74 Year
  Sex: Male

DRUGS (1)
  1. MEROPEN [Suspect]
     Route: 041
     Dates: start: 20050601, end: 20050701

REACTIONS (2)
  - MULTI-ORGAN FAILURE [None]
  - TOXIC EPIDERMAL NECROLYSIS [None]
